FAERS Safety Report 7071498-8 (Version None)
Quarter: 2010Q4

REPORT INFORMATION
  Report Type: 
  Country: None (occurrence: None)
  Receive Date: 20101029
  Receipt Date: 20090911
  Transmission Date: 20110411
  Serious: No
  Sender: FDA-Public Use
  Company Number: A0806914A

PATIENT
  Age: 69 Year
  Sex: Female

DRUGS (5)
  1. ADVAIR DISKUS 100/50 [Suspect]
     Indication: RESPIRATORY TRACT INFLAMMATION
     Dosage: 1PUFF TWICE PER DAY
     Route: 055
     Dates: start: 20090911
  2. AZITHROMYCIN [Concomitant]
  3. AMLODIPINE [Concomitant]
  4. HYDROMET (SYRUP) [Concomitant]
  5. PREDNISONE [Concomitant]

REACTIONS (2)
  - COUGH [None]
  - INCREASED UPPER AIRWAY SECRETION [None]
